FAERS Safety Report 23822884 (Version 3)
Quarter: 2024Q4

REPORT INFORMATION
  Report Type: Report from Study
  Country: NL (occurrence: NL)
  Receive Date: 20240506
  Receipt Date: 20241218
  Transmission Date: 20250115
  Serious: Yes (Hospitalization, Other)
  Sender: ABBVIE
  Company Number: NL-ABBVIE-5745921

PATIENT
  Age: 69 Year
  Sex: Female

DRUGS (9)
  1. CARBIDOPA\LEVODOPA [Suspect]
     Active Substance: CARBIDOPA\LEVODOPA
     Indication: Parkinson^s disease
     Dosage: MD: 9.5ML, CD: 4.3ML/H, ED: 3.2ML, CND: 4.1ML/H, END: 3.2ML
     Route: 050
     Dates: start: 20240502, end: 20240823
  2. CARBIDOPA\LEVODOPA [Suspect]
     Active Substance: CARBIDOPA\LEVODOPA
     Route: 050
     Dates: start: 20220830
  3. CARBIDOPA\LEVODOPA [Suspect]
     Active Substance: CARBIDOPA\LEVODOPA
     Dosage: MD: 8.0ML, CD: 3.7ML/H, ED: 3.2ML, CND: 3.5ML/H, END: 3.2ML, ?REMAINS AT 24 HOURS
     Route: 050
     Dates: start: 20240102, end: 20240327
  4. CARBIDOPA\LEVODOPA [Suspect]
     Active Substance: CARBIDOPA\LEVODOPA
     Dosage: MD: 8.0ML, CD: 3.7ML/H, ED: 3.2ML, CND: 3.5ML/H, ?REMAINS AT 24 HOURS
     Route: 050
     Dates: start: 20240327, end: 20240502
  5. CARBIDOPA\LEVODOPA [Suspect]
     Active Substance: CARBIDOPA\LEVODOPA
     Dosage: PUMP TYPE : DAY PUMP, MD: 7.5ML, CD: 4.6ML/H, ED: 3.00ML, CND: 4.1ML/H, THERAPY DURATION : REMAIN...
     Route: 050
     Dates: start: 20240823, end: 20240823
  6. CARBIDOPA\LEVODOPA [Suspect]
     Active Substance: CARBIDOPA\LEVODOPA
     Dosage: PUMP TYPE : NIGHT PUMP, ED : 3.20 ML, NCD : 3.5 ML/HR, THERAPY DURATION : REMAINS AT 24 HRS
     Route: 050
     Dates: start: 20241118, end: 20241118
  7. CARBIDOPA\LEVODOPA [Suspect]
     Active Substance: CARBIDOPA\LEVODOPA
     Dosage: PUMP TYPE : NIGHT PUMP, ED : 3.20 ML, NCD : 3.5 ML/HR, THERAPY DURATION : REMAINS AT 24 HRS
     Route: 050
     Dates: start: 20241118, end: 20241211
  8. CARBIDOPA\LEVODOPA [Suspect]
     Active Substance: CARBIDOPA\LEVODOPA
     Dosage: PUMP TYPE : 1 DAY PUMP, MD : 7.5 ML, CD : 4.3 ML/HR, ED : 2.50 ML/HR, NCD : 4.1 ML/HR, THERAPY DU...
     Route: 050
     Dates: start: 20241211
  9. MAGNESIUM [Concomitant]
     Active Substance: MAGNESIUM
     Indication: Product used for unknown indication
     Route: 065

REACTIONS (13)
  - Medical device adjustment [Not Recovered/Not Resolved]
  - On and off phenomenon [Not Recovered/Not Resolved]
  - Drug interaction [Unknown]
  - Muscle rigidity [Not Recovered/Not Resolved]
  - Therapeutic product effect incomplete [Recovering/Resolving]
  - Enteral nutrition [Recovered/Resolved]
  - Deep brain stimulation [Not Recovered/Not Resolved]
  - Dyskinesia [Not Recovered/Not Resolved]
  - Appetite disorder [Not Recovered/Not Resolved]
  - Weight decreased [Not Recovered/Not Resolved]
  - Middle insomnia [Not Recovered/Not Resolved]
  - Stoma site erythema [Not Recovered/Not Resolved]
  - Stoma site pain [Not Recovered/Not Resolved]

NARRATIVE: CASE EVENT DATE: 20240101
